FAERS Safety Report 7460140-X (Version None)
Quarter: 2011Q2

REPORT INFORMATION
  Report Type: 
  Country: None (occurrence: None)
  Receive Date: 20110505
  Receipt Date: 20110427
  Transmission Date: 20111010
  Serious: Yes (Other)
  Sender: FDA-Public Use
  Company Number: MX-ELI_LILLY_AND_COMPANY-MX201104000241

PATIENT
  Age: 59 Year
  Sex: Female
  Weight: 69 kg

DRUGS (10)
  1. HUMALOG MIX 75/25 [Suspect]
     Dosage: 32 IU, EACH EVENING
  2. HUMALOG MIX 75/25 [Suspect]
     Dosage: 30 IU, EACH MORNING
     Dates: start: 20110407
  3. HUMALOG MIX 75/25 [Suspect]
     Dosage: 20 IU, OTHER
  4. HUMALOG [Suspect]
     Dosage: 2 IU, OTHER
  5. HUMALOG MIX 75/25 [Suspect]
     Indication: DIABETES MELLITUS
     Dosage: 32 IU, EACH MORNING
     Dates: start: 20110407
  6. ATIVAN [Concomitant]
     Indication: INSOMNIA
     Dosage: UNK
  7. HUMALOG [Suspect]
     Indication: DIABETES MELLITUS
     Dosage: 14 IU, UNK
     Route: 058
     Dates: start: 20030101
  8. INSULIN NPH                        /01223208/ [Concomitant]
     Dosage: UNK
  9. HUMALOG MIX 75/25 [Suspect]
     Dosage: 12 IU, OTHER
     Dates: start: 20110407
  10. HUMALOG MIX 75/25 [Suspect]
     Dosage: 14 IU, OTHER

REACTIONS (12)
  - HYPOGLYCAEMIA [None]
  - WEIGHT INCREASED [None]
  - KETOACIDOSIS [None]
  - MALAISE [None]
  - DIARRHOEA [None]
  - HYPERHIDROSIS [None]
  - DIABETES MELLITUS INADEQUATE CONTROL [None]
  - HYPERGLYCAEMIA [None]
  - MOBILITY DECREASED [None]
  - TREMOR [None]
  - ASTHENIA [None]
  - HEADACHE [None]
